FAERS Safety Report 6890118-6 (Version None)
Quarter: 2010Q3

REPORT INFORMATION
  Report Type: 
  Country: None (occurrence: None)
  Receive Date: 20100730
  Receipt Date: 20080731
  Transmission Date: 20110219
  Serious: No
  Sender: FDA-Public Use
  Company Number: US-PFIZER INC-2008063952

PATIENT
  Sex: Female
  Weight: 100 kg

DRUGS (4)
  1. LIPITOR [Suspect]
     Dates: start: 20080601, end: 20080701
  2. ARTHROTEC [Concomitant]
  3. PRILOSEC [Concomitant]
  4. FENTANYL [Concomitant]

REACTIONS (1)
  - ALOPECIA [None]
